FAERS Safety Report 25994198 (Version 1)
Quarter: 2025Q4

REPORT INFORMATION
  Report Type: Spontaneous
  Country: US (occurrence: US)
  Receive Date: 20251104
  Receipt Date: 20251104
  Transmission Date: 20260118
  Serious: No
  Sender: SANDOZ
  Company Number: US-SANDOZ-SDZ2025US078770

PATIENT
  Sex: Male

DRUGS (1)
  1. ALBUTEROL SULFATE [Suspect]
     Active Substance: ALBUTEROL SULFATE
     Indication: Product used for unknown indication
     Dosage: UNK; 90MCG/DOS  200DOS 1ASP
     Route: 055

REACTIONS (4)
  - Device delivery system issue [Unknown]
  - Circumstance or information capable of leading to device use error [Unknown]
  - Wrong technique in device usage process [Unknown]
  - Device use issue [Unknown]
